FAERS Safety Report 21263288 (Version 1)
Quarter: 2022Q3

REPORT INFORMATION
  Report Type: Spontaneous
  Country: US (occurrence: US)
  Receive Date: 20220829
  Receipt Date: 20220829
  Transmission Date: 20221027
  Serious: Yes (Other)
  Sender: FDA-Public Use
  Company Number: US-BRISTOL-MYERS SQUIBB COMPANY-2022-086615

PATIENT
  Age: 81 Year
  Sex: Male
  Weight: 124.3 kg

DRUGS (19)
  1. ELIQUIS [Suspect]
     Active Substance: APIXABAN
     Indication: Product used for unknown indication
     Route: 065
  2. NUZYRA [Suspect]
     Active Substance: OMADACYCLINE
     Indication: Cellulitis
     Route: 048
     Dates: start: 20220625, end: 20220626
  3. NUZYRA [Suspect]
     Active Substance: OMADACYCLINE
     Indication: Infection
     Dosage: AFTER 2 DAYS, THE PATIENT WAS PRESCRIBED TO TAKE 300 MG DAILY UNTIL HE MADE IT TO 10 DAYS.
     Route: 048
     Dates: start: 20220627, end: 20220705
  4. ARTHROTEC [Concomitant]
     Active Substance: DICLOFENAC SODIUM\MISOPROSTOL
     Indication: Product used for unknown indication
     Dosage: 50/0.2 MG
     Route: 065
  5. TYLENOL [Concomitant]
     Active Substance: ACETAMINOPHEN
     Indication: Product used for unknown indication
     Route: 065
  6. KEYTRUDA [Concomitant]
     Active Substance: PEMBROLIZUMAB
     Indication: Product used for unknown indication
     Route: 065
  7. LOSARTAN [Concomitant]
     Active Substance: LOSARTAN
     Indication: Product used for unknown indication
     Route: 065
  8. VITAMIN D3 [Concomitant]
     Active Substance: CHOLECALCIFEROL
     Indication: Product used for unknown indication
     Route: 065
  9. POTASSIUM [Concomitant]
     Active Substance: POTASSIUM
     Indication: Product used for unknown indication
     Route: 065
  10. FUROSEMIDE [Concomitant]
     Active Substance: FUROSEMIDE
     Indication: Product used for unknown indication
     Route: 065
  11. NORVASC [Concomitant]
     Active Substance: AMLODIPINE BESYLATE
     Indication: Product used for unknown indication
     Route: 065
  12. AMIODARONE [Concomitant]
     Active Substance: AMIODARONE
     Indication: Product used for unknown indication
     Route: 065
  13. PANTOPRAZOLE [Concomitant]
     Active Substance: PANTOPRAZOLE
     Indication: Product used for unknown indication
     Route: 065
  14. LIPITOR [Concomitant]
     Active Substance: ATORVASTATIN CALCIUM
     Indication: Product used for unknown indication
     Route: 065
  15. VITAMIN D2 [Concomitant]
     Active Substance: ERGOCALCIFEROL
     Indication: Product used for unknown indication
     Route: 065
  16. SYNTHROID [Concomitant]
     Active Substance: LEVOTHYROXINE SODIUM
     Indication: Product used for unknown indication
     Route: 065
  17. NORCO [Concomitant]
     Active Substance: ACETAMINOPHEN\HYDROCODONE BITARTRATE
     Indication: Product used for unknown indication
     Dosage: 10/325 4X/DAY IF HE NEEDED
     Route: 065
  18. HYDROXYZINE [Concomitant]
     Active Substance: HYDROXYZINE HYDROCHLORIDE
     Indication: Hypersensitivity
     Dosage: 2 TABLETS EVERY 6 HOURS
     Route: 065
  19. HYDROXYZINE [Concomitant]
     Active Substance: HYDROXYZINE HYDROCHLORIDE
     Dosage: 50 MG (1 TO 2 TABLETS AS NEEDED) FOR THE ITCHING.
     Route: 065

REACTIONS (30)
  - Drug hypersensitivity [Not Recovered/Not Resolved]
  - Body temperature decreased [Unknown]
  - Blister [Not Recovered/Not Resolved]
  - Generalised oedema [Unknown]
  - Skin erosion [Unknown]
  - Blood blister [Unknown]
  - Skin atrophy [Unknown]
  - Gait disturbance [Unknown]
  - Tongue disorder [Unknown]
  - Pain of skin [Unknown]
  - Pain [Unknown]
  - Irritability [Unknown]
  - Somnolence [Unknown]
  - Visual impairment [Unknown]
  - Pyrexia [Unknown]
  - Listless [Unknown]
  - Asthenia [Unknown]
  - Dyspnoea [Unknown]
  - Decreased appetite [Unknown]
  - Scab [Unknown]
  - Tremor [Unknown]
  - Feeling cold [Unknown]
  - Dry skin [Unknown]
  - Tearfulness [Unknown]
  - Fluid retention [Unknown]
  - Swelling [Not Recovered/Not Resolved]
  - Erythema [Unknown]
  - Pruritus [Recovered/Resolved]
  - Fatigue [Unknown]
  - Unevaluable event [Unknown]

NARRATIVE: CASE EVENT DATE: 20220101
